FAERS Safety Report 22236676 (Version 1)
Quarter: 2023Q2

REPORT INFORMATION
  Report Type: Spontaneous
  Country: US (occurrence: US)
  Receive Date: 20230420
  Receipt Date: 20230420
  Transmission Date: 20230722
  Serious: No
  Sender: FDA-Public Use
  Company Number: US-ALLERGAN-2201342US

PATIENT
  Sex: Male

DRUGS (2)
  1. RESTASIS [Interacting]
     Active Substance: CYCLOSPORINE
     Indication: Product used for unknown indication
     Dosage: UNK
  2. MULTAQ [Interacting]
     Active Substance: DRONEDARONE
     Indication: Atrial fibrillation
     Dosage: 400 MG, BID

REACTIONS (2)
  - Drug interaction [Unknown]
  - Eye irritation [Unknown]
